FAERS Safety Report 18459474 (Version 4)
Quarter: 2020Q4

REPORT INFORMATION
  Report Type: Spontaneous
  Country: US (occurrence: US)
  Receive Date: 20201103
  Receipt Date: 20201214
  Transmission Date: 20210114
  Serious: No
  Sender: FDA-Public Use
  Company Number: US-PFIZER INC-2020424167

PATIENT
  Age: 71 Year
  Sex: Female

DRUGS (1)
  1. INLYTA [Suspect]
     Active Substance: AXITINIB
     Dosage: 5 MG
     Dates: start: 20201022

REACTIONS (3)
  - Decreased appetite [Unknown]
  - Blood pressure increased [Recovered/Resolved]
  - Blood pressure diastolic increased [Unknown]

NARRATIVE: CASE EVENT DATE: 20201109
